FAERS Safety Report 23953479 (Version 1)
Quarter: 2024Q2

REPORT INFORMATION
  Report Type: Spontaneous
  Country: AU (occurrence: AU)
  Receive Date: 20240608
  Receipt Date: 20240608
  Transmission Date: 20240716
  Serious: Yes (Hospitalization)
  Sender: FDA-Public Use
  Company Number: AU-ABBVIE-5790037

PATIENT
  Age: 52 Year
  Sex: Female

DRUGS (6)
  1. BOTOX [Suspect]
     Active Substance: ONABOTULINUMTOXINA
     Indication: Product used for unknown indication
     Dosage: TIME INTERVAL: AS NECESSARY
     Route: 030
  2. CETIRIZINE [Concomitant]
     Active Substance: CETIRIZINE HYDROCHLORIDE
     Indication: Hypersensitivity
  3. PREDNISOLONE [Concomitant]
     Active Substance: PREDNISOLONE
     Indication: Hypersensitivity
  4. HYALURONIC ACID [Suspect]
     Active Substance: HYALURONIC ACID
     Indication: Product used for unknown indication
     Route: 065
  5. MELOXICAM [Concomitant]
     Active Substance: MELOXICAM
     Indication: Hypersensitivity
  6. AMOXICILLIN [Concomitant]
     Active Substance: AMOXICILLIN
     Indication: Hypersensitivity

REACTIONS (8)
  - Lip swelling [Unknown]
  - Feeling hot [Unknown]
  - Swelling face [Unknown]
  - Dizziness [Unknown]
  - Anxiety [Unknown]
  - Peripheral swelling [Unknown]
  - Paraesthesia [Unknown]
  - Oral pain [Unknown]

NARRATIVE: CASE EVENT DATE: 20230401
